FAERS Safety Report 13034447 (Version 3)
Quarter: 2017Q1

REPORT INFORMATION
  Report Type: Report from Study
  Country: US (occurrence: US)
  Receive Date: 20161216
  Receipt Date: 20170213
  Transmission Date: 20170428
  Serious: No
  Sender: FDA-Public Use
  Company Number: US-009507513-1612USA002436

PATIENT
  Age: 54 Year
  Sex: Female

DRUGS (5)
  1. VITAMIN D [Concomitant]
     Active Substance: CHOLECALCIFEROL
  2. KEYTRUDA [Suspect]
     Active Substance: PEMBROLIZUMAB
     Indication: MALIGNANT MELANOMA
     Dosage: UNK, Q3W
     Route: 042
     Dates: start: 20161019
  3. ATORVASTATIN [Concomitant]
     Active Substance: ATORVASTATIN
  4. KEYTRUDA [Suspect]
     Active Substance: PEMBROLIZUMAB
     Dosage: UNK
     Dates: start: 20161227
  5. KEYTRUDA [Suspect]
     Active Substance: PEMBROLIZUMAB
     Dosage: FIFTH INFUSION
     Dates: start: 20170120

REACTIONS (9)
  - Muscular weakness [Recovered/Resolved]
  - Eye swelling [Not Recovered/Not Resolved]
  - Mass [Recovered/Resolved]
  - Diarrhoea [Recovered/Resolved]
  - Headache [Recovered/Resolved]
  - Butterfly rash [Unknown]
  - Lymphatic disorder [Unknown]
  - Vomiting [Recovered/Resolved]
  - Fatigue [Unknown]

NARRATIVE: CASE EVENT DATE: 2016
